FAERS Safety Report 9135189 (Version 1)
Quarter: 2013Q1

REPORT INFORMATION
  Report Type: Spontaneous
  Country: US (occurrence: US)
  Receive Date: 20130304
  Receipt Date: 20130304
  Transmission Date: 20140127
  Serious: No
  Sender: FDA-Public Use
  Company Number: US-PFIZER INC-2013074017

PATIENT
  Age: 43 Year
  Sex: Female
  Weight: 58.5 kg

DRUGS (4)
  1. LYRICA [Suspect]
     Indication: HEADACHE
     Dosage: 600 MG, DAILY
     Dates: start: 201206, end: 20120928
  2. AMBIEN [Concomitant]
     Indication: SLEEP DISORDER
     Dosage: UNK
  3. EFFEXOR-XR [Concomitant]
     Indication: DEPRESSION
     Dosage: 150 MG, DAILY
  4. WELLBUTRIN [Concomitant]
     Dosage: 150 MG, 2X/DAY

REACTIONS (5)
  - Agitation [Not Recovered/Not Resolved]
  - Weight increased [Not Recovered/Not Resolved]
  - Dry skin [Not Recovered/Not Resolved]
  - Dry mouth [Not Recovered/Not Resolved]
  - Off label use [Unknown]
